FAERS Safety Report 24200738 (Version 1)
Quarter: 2024Q3

REPORT INFORMATION
  Report Type: Other
  Country: US (occurrence: US)
  Receive Date: 20240812
  Receipt Date: 20240812
  Transmission Date: 20241017
  Serious: Yes (Hospitalization, Other)
  Sender: BIONPHARMA
  Company Number: US-Bion-013650

PATIENT
  Age: 65 Year
  Sex: Female

DRUGS (2)
  1. DEXAMETHASONE [Suspect]
     Active Substance: DEXAMETHASONE
     Indication: Product used for unknown indication
     Dosage: EVERY 6H
  2. LEVETIRACETAM [Concomitant]
     Active Substance: LEVETIRACETAM
     Indication: Product used for unknown indication

REACTIONS (2)
  - Pelvic abscess [Recovering/Resolving]
  - Diverticular perforation [Recovering/Resolving]
